FAERS Safety Report 6517122-1 (Version None)
Quarter: 2009Q4

REPORT INFORMATION
  Report Type: 
  Country: None (occurrence: None)
  Receive Date: 20091223
  Receipt Date: 20091214
  Transmission Date: 20100525
  Serious: Yes (Hospitalization)
  Sender: FDA-Public Use
  Company Number: NL-ELI_LILLY_AND_COMPANY-NL200912004167

PATIENT
  Sex: Male

DRUGS (2)
  1. ZYPREXA [Suspect]
     Dosage: 5 MG, UNK
     Route: 065
     Dates: start: 20091211
  2. LAMOTRIGINE [Concomitant]

REACTIONS (2)
  - DEPRESSION [None]
  - HYPOMANIA [None]
